FAERS Safety Report 19242586 (Version 2)
Quarter: 2022Q1

REPORT INFORMATION
  Report Type: Spontaneous
  Country: US (occurrence: US)
  Receive Date: 20210511
  Receipt Date: 20220214
  Transmission Date: 20220423
  Serious: No
  Sender: FDA-Public Use
  Company Number: US-PFIZER INC-2021488866

PATIENT
  Age: 52 Year
  Sex: Female
  Weight: 65 kg

DRUGS (2)
  1. IBRANCE [Suspect]
     Active Substance: PALBOCICLIB
     Indication: Breast cancer metastatic
     Dosage: 75 MG, CYCLIC (THREE WEEKS ON ONE WEEK OFF)
     Dates: start: 2020
  2. LETROZOLE [Concomitant]
     Active Substance: LETROZOLE
     Indication: Breast cancer female
     Dosage: UNK

REACTIONS (5)
  - Lymphadenopathy [Recovered/Resolved]
  - Lymphadenitis [Recovered/Resolved]
  - Rhinalgia [Recovered/Resolved]
  - Arthralgia [Unknown]
  - Alopecia [Unknown]

NARRATIVE: CASE EVENT DATE: 20200901
